FAERS Safety Report 5992382-4 (Version None)
Quarter: 2008Q4

REPORT INFORMATION
  Report Type: 
  Country: None (occurrence: None)
  Receive Date: 20081202
  Receipt Date: 20080215
  Transmission Date: 20090506
  Serious: Yes (Other)
  Sender: FDA-Public Use
  Company Number: WAES 0705USA02518

PATIENT
  Age: 54 Year
  Sex: Female
  Weight: 53.0709 kg

DRUGS (2)
  1. FOSAMAX [Suspect]
     Indication: OSTEOPOROSIS
     Dosage: 10 MG/PO
     Route: 048
     Dates: start: 20010725, end: 20021101
  2. FOSAMAX [Suspect]
     Indication: OSTEOPOROSIS
     Dosage: 70 MG/PO
     Route: 047
     Dates: start: 20010725, end: 20021101

REACTIONS (10)
  - BONE DISORDER [None]
  - EYE DISORDER [None]
  - GINGIVAL ABSCESS [None]
  - IMPAIRED HEALING [None]
  - ORAL INFECTION [None]
  - OSTEONECROSIS [None]
  - TOOTH ABSCESS [None]
  - TOOTH LOSS [None]
  - TRISMUS [None]
  - VITAMIN D DEFICIENCY [None]
